FAERS Safety Report 25929897 (Version 6)
Quarter: 2025Q4

REPORT INFORMATION
  Report Type: Spontaneous
  Country: CA (occurrence: CA)
  Receive Date: 20251016
  Receipt Date: 20251210
  Transmission Date: 20260117
  Serious: Yes (Other)
  Sender: PFIZER
  Company Number: CA-PFIZER INC-202500201385

PATIENT
  Age: 45 Year
  Sex: Male
  Weight: 79 kg

DRUGS (3)
  1. IXIFI [Suspect]
     Active Substance: INFLIXIMAB-QBTX
     Indication: Crohn^s disease
     Dosage: 400 MG, EVERY 8 WEEK
     Route: 042
     Dates: start: 20250815
  2. IXIFI [Suspect]
     Active Substance: INFLIXIMAB-QBTX
     Dosage: 400 MG, 9 WEEKS AND 6 DAYS (400 MG, EVERY 8 WEEK)
     Route: 042
     Dates: start: 20251023
  3. IXIFI [Suspect]
     Active Substance: INFLIXIMAB-QBTX
     Dosage: 400 MG,  AFTER 6 WEEKS (400 MG EVERY 8 WEEKS)
     Route: 042
     Dates: start: 20251204

REACTIONS (9)
  - Arthropod bite [Unknown]
  - Erythema [Unknown]
  - Swelling [Unknown]
  - Feeling hot [Unknown]
  - Palpitations [Unknown]
  - Rash erythematous [Recovering/Resolving]
  - Fistula [Not Recovered/Not Resolved]
  - Condition aggravated [Not Recovered/Not Resolved]
  - Off label use [Unknown]

NARRATIVE: CASE EVENT DATE: 20250101
